FAERS Safety Report 9245037 (Version 3)
Quarter: 2015Q3

REPORT INFORMATION
  Report Type: Spontaneous
  Country: US (occurrence: US)
  Receive Date: 20130422
  Receipt Date: 20150810
  Transmission Date: 20151125
  Serious: Yes (Hospitalization, Other)
  Sender: FDA-Public Use
  Company Number: PHEH2013US008597

PATIENT
  Age: 71 Year
  Sex: Female

DRUGS (8)
  1. CARVEDILOL. [Concomitant]
     Active Substance: CARVEDILOL
     Indication: PRODUCT USED FOR UNKNOWN INDICATION
     Dosage: 12.5 MG, UNK
     Route: 048
  2. LEVOTHYROXINE. [Concomitant]
     Active Substance: LEVOTHYROXINE
     Indication: PRODUCT USED FOR UNKNOWN INDICATION
     Dosage: 88 MCG/ML, UNK
     Route: 048
  3. BENICAR [Suspect]
     Active Substance: OLMESARTAN MEDOXOMIL
     Indication: PRODUCT USED FOR UNKNOWN INDICATION
     Route: 065
  4. TEKTURNA [Suspect]
     Active Substance: ALISKIREN HEMIFUMARATE
     Indication: PRODUCT USED FOR UNKNOWN INDICATION
     Route: 065
  5. LISINOPRIL. [Concomitant]
     Active Substance: LISINOPRIL
     Indication: PRODUCT USED FOR UNKNOWN INDICATION
     Dosage: 10 MG, UNK
     Route: 048
  6. VALTURNA [Suspect]
     Active Substance: ALISKIREN HEMIFUMARATE\VALSARTAN
     Indication: PRODUCT USED FOR UNKNOWN INDICATION
     Route: 065
     Dates: start: 2010
  7. SIMVASTATIN. [Concomitant]
     Active Substance: SIMVASTATIN
     Indication: PRODUCT USED FOR UNKNOWN INDICATION
     Dosage: 20 MG, UNK
     Route: 048
  8. DOXAZOSIN MESYLATE. [Concomitant]
     Active Substance: DOXAZOSIN MESYLATE
     Indication: PRODUCT USED FOR UNKNOWN INDICATION
     Dosage: 2 MG, UNK
     Route: 048

REACTIONS (79)
  - Arteriosclerosis coronary artery [Unknown]
  - Cardiomegaly [Unknown]
  - Haemorrhoids [Unknown]
  - Endocrine disorder [Unknown]
  - Arthritis [Unknown]
  - Dysuria [Unknown]
  - Arrhythmia [Unknown]
  - Tonsillitis [Unknown]
  - Nephrolithiasis [Unknown]
  - Pleural effusion [Unknown]
  - Gastrointestinal disorder [Unknown]
  - Osteopenia [Unknown]
  - Dysmenorrhoea [Unknown]
  - Dyspepsia [Unknown]
  - Hydronephrosis [Unknown]
  - Pulmonary fibrosis [Unknown]
  - Renal failure [Unknown]
  - Brain natriuretic peptide increased [Unknown]
  - Renal cyst [Unknown]
  - Pleural fibrosis [Unknown]
  - Lung infiltration [Unknown]
  - Mitral valve incompetence [Unknown]
  - Pericardial effusion [Unknown]
  - Hypothyroidism [Unknown]
  - Rectal haemorrhage [Unknown]
  - Hyperlipidaemia [Unknown]
  - Osteoporosis [Unknown]
  - Hypercholesterolaemia [Unknown]
  - Hiatus hernia [Unknown]
  - Left ventricular hypertrophy [Unknown]
  - Pyuria [Unknown]
  - Back pain [Unknown]
  - Nausea [Unknown]
  - Dyspnoea [Unknown]
  - Hypertension [Unknown]
  - Cerebrovascular accident [Unknown]
  - Anhedonia [Unknown]
  - Asthma [Unknown]
  - Cystitis [Unknown]
  - Hypermagnesaemia [Unknown]
  - Depression [Unknown]
  - Chest pain [Unknown]
  - Skin papilloma [Unknown]
  - Pyrexia [Unknown]
  - Asthenia [Unknown]
  - Hypercalcaemia [Unknown]
  - Injury [Unknown]
  - Tricuspid valve incompetence [Unknown]
  - Thyroid disorder [Unknown]
  - Hypertriglyceridaemia [Unknown]
  - Cervicitis [Unknown]
  - Anaemia [Unknown]
  - Glaucoma [Unknown]
  - Pain in extremity [Unknown]
  - Blister [Unknown]
  - Aortic stenosis [Unknown]
  - Kidney infection [Unknown]
  - Chronic kidney disease [Unknown]
  - Anxiety [Unknown]
  - Atelectasis [Unknown]
  - Alveolitis [Unknown]
  - Neurofibroma [Unknown]
  - Haematuria [Unknown]
  - Hyperparathyroidism [Unknown]
  - Gastrooesophageal reflux disease [Unknown]
  - Headache [Unknown]
  - Ejection fraction abnormal [Unknown]
  - Pain [Unknown]
  - Pulmonary mass [Unknown]
  - Skin lesion [Unknown]
  - Left ventricular dysfunction [Unknown]
  - Musculoskeletal disorder [Unknown]
  - Weight increased [Unknown]
  - Myalgia [Unknown]
  - Normochromic normocytic anaemia [Unknown]
  - Memory impairment [Unknown]
  - Urinary tract infection [Unknown]
  - Abdominal pain [Unknown]
  - Dizziness [Unknown]

NARRATIVE: CASE EVENT DATE: 20140513
